FAERS Safety Report 8195476-0 (Version None)
Quarter: 2012Q1

REPORT INFORMATION
  Report Type: 
  Country: None (occurrence: None)
  Receive Date: 20120308
  Receipt Date: 20120301
  Transmission Date: 20120608
  Serious: Yes (Other)
  Sender: FDA-Public Use
  Company Number: PHEH2012US005025

PATIENT
  Sex: Male

DRUGS (3)
  1. TEGRETOL [Suspect]
     Dosage: 0.5 DF, UNK
  2. TEGRETOL [Suspect]
  3. CARBAMAZEPINE [Suspect]
     Dosage: 0.5 DF, UNK

REACTIONS (2)
  - DRUG LEVEL CHANGED [None]
  - CONVULSION [None]
